FAERS Safety Report 18609992 (Version 2)
Quarter: 2021Q1

REPORT INFORMATION
  Report Type: Report from Study
  Country: US (occurrence: US)
  Receive Date: 20201214
  Receipt Date: 20210212
  Transmission Date: 20210419
  Serious: Yes (Other)
  Sender: FDA-Public Use
  Company Number: US-EMD SERONO-9203831

PATIENT

DRUGS (1)
  1. SEROSTIM [Suspect]
     Active Substance: SOMATROPIN
     Indication: PRODUCT USED FOR UNKNOWN INDICATION
     Dosage: SEROSTIM 4 MG MULTI DOSE 7?VIAL PACK
     Dates: start: 20191031

REACTIONS (4)
  - Immunodeficiency [Unknown]
  - Cough [Unknown]
  - Urinary tract infection [Recovering/Resolving]
  - Gastrooesophageal reflux disease [Unknown]
